FAERS Safety Report 24126750 (Version 1)
Quarter: 2024Q3

REPORT INFORMATION
  Report Type: Spontaneous
  Country: US (occurrence: None)
  Receive Date: 20240722
  Receipt Date: 20240722
  Transmission Date: 20241016
  Serious: Yes (Death)
  Sender: Public
  Company Number: None

PATIENT
  Age: 66 Year
  Sex: Male

DRUGS (1)
  1. TOBRAMYCIN [Suspect]
     Active Substance: TOBRAMYCIN\TOBRAMYCIN SULFATE
     Indication: Bacterial infection
     Dosage: FREQUENCY : AS DIRECTED;?
     Route: 048
     Dates: start: 20240711

REACTIONS (1)
  - Death [None]

NARRATIVE: CASE EVENT DATE: 20240719
